FAERS Safety Report 9294685 (Version 2)
Quarter: 2013Q4

REPORT INFORMATION
  Report Type: Report from Study
  Country: CA (occurrence: CA)
  Receive Date: 20130517
  Receipt Date: 20131205
  Transmission Date: 20140711
  Serious: Yes (Other)
  Sender: FDA-Public Use
  Company Number: CA-JNJFOC-20130507308

PATIENT
  Age: 64 Year
  Sex: Female
  Weight: 86.18 kg

DRUGS (5)
  1. REMICADE [Suspect]
     Indication: CROHN^S DISEASE
     Route: 042
     Dates: start: 20130312, end: 20130312
  2. REMICADE [Suspect]
     Indication: CROHN^S DISEASE
     Route: 042
     Dates: start: 201204
  3. REMICADE [Suspect]
     Indication: CROHN^S DISEASE
     Route: 042
     Dates: start: 201206, end: 2013
  4. TECTA [Concomitant]
     Indication: GASTROOESOPHAGEAL REFLUX DISEASE
     Route: 065
  5. COUMARIN [Concomitant]
     Indication: PORTAL VEIN THROMBOSIS
     Route: 065

REACTIONS (5)
  - Arthritis [Recovered/Resolved]
  - Dyspnoea [Unknown]
  - Back pain [Unknown]
  - Joint swelling [Unknown]
  - Infusion related reaction [Unknown]
